FAERS Safety Report 10043147 (Version 2)
Quarter: 2014Q1

REPORT INFORMATION
  Report Type: Spontaneous
  Country: JP (occurrence: JP)
  Receive Date: 20140328
  Receipt Date: 20140328
  Transmission Date: 20141002
  Serious: Yes (Hospitalization)
  Sender: FDA-Public Use
  Company Number: JP-ROCHE-1309044

PATIENT
  Age: 58 Year
  Sex: Female
  Weight: 54 kg

DRUGS (7)
  1. CYCLOPHOSPHAMIDE [Concomitant]
  2. AVASTIN [Suspect]
     Indication: BREAST CANCER METASTATIC
     Route: 041
     Dates: start: 20130701, end: 20131007
  3. PACLITAXEL [Suspect]
     Indication: BREAST CANCER METASTATIC
     Route: 042
     Dates: start: 20130603, end: 20131007
  4. DECADRON [Concomitant]
     Indication: ALLERGY PROPHYLAXIS
     Route: 042
     Dates: start: 20130603, end: 20131007
  5. FAMOTIDINE [Concomitant]
     Indication: PROPHYLAXIS
     Route: 042
     Dates: start: 20130603, end: 20131007
  6. POLARAMINE [Concomitant]
     Indication: ALLERGY PROPHYLAXIS
     Route: 042
     Dates: start: 20130603, end: 20131007
  7. EPIRUBICIN [Concomitant]

REACTIONS (1)
  - Interstitial lung disease [Recovered/Resolved]
